FAERS Safety Report 7243804-2 (Version None)
Quarter: 2011Q1

REPORT INFORMATION
  Report Type: 
  Country: None (occurrence: None)
  Receive Date: 20110125
  Receipt Date: 20110112
  Transmission Date: 20110831
  Serious: Yes (Hospitalization)
  Sender: FDA-Public Use
  Company Number: PHHY2011CH04714

PATIENT
  Sex: Female

DRUGS (11)
  1. DAFALGAN [Suspect]
     Dosage: 3 X 1G
     Route: 048
     Dates: start: 20101203, end: 20101205
  2. NEXIUM [Concomitant]
     Dosage: UNK
  3. JANUVIA [Suspect]
     Dosage: 100 MG, UNK
     Route: 048
     Dates: start: 20100901
  4. ELTROXIN [Concomitant]
     Dosage: UNK
  5. METFIN [Suspect]
     Dosage: 850 MG, TID
     Route: 048
  6. AMARYL [Suspect]
     Dosage: 4 MG, UNK
     Route: 048
  7. LORMETAZEPAM [Suspect]
     Dosage: 4 MG, UNK
     Route: 048
  8. CALCIMAGON-D3 [Concomitant]
     Dosage: UNK
  9. TRIMIPRAMINE [Suspect]
     Dosage: 200 MG
     Route: 048
  10. SORTIS [Suspect]
     Dosage: 40 MG, UNK
     Route: 048
  11. LIMBITROL [Suspect]
     Dosage: 12.5 MG, TID
     Route: 048

REACTIONS (3)
  - HEPATITIS [None]
  - HEPATOMEGALY [None]
  - HEPATOCELLULAR INJURY [None]
